FAERS Safety Report 8613356-0 (Version None)
Quarter: 2012Q3

REPORT INFORMATION
  Report Type: 
  Country: None (occurrence: None)
  Receive Date: 20120822
  Receipt Date: 20120806
  Transmission Date: 20120928
  Serious: Yes (Life-Threatening, Hospitalization, Other)
  Sender: FDA-Public Use
  Company Number: DE-009507513-1208DEU003573

PATIENT

DRUGS (4)
  1. CYCLOPHOSPHAMIDE [Concomitant]
     Dosage: UNK
     Dates: start: 20120101
  2. SINGULAIR [Suspect]
     Indication: BUTTERFLY RASH
     Dosage: UNK
     Route: 048
     Dates: start: 20100101, end: 20120601
  3. CORTICOSTEROIDS (UNSPECIFIED) [Concomitant]
     Indication: EOSINOPHILIA
     Dosage: UNK
     Dates: start: 20100827
  4. METHOTREXATE [Concomitant]
     Indication: EOSINOPHILIA
     Dosage: UNK
     Dates: start: 20100827, end: 20120501

REACTIONS (3)
  - ALLERGIC GRANULOMATOUS ANGIITIS [None]
  - OFF LABEL USE [None]
  - HEPATIC FUNCTION ABNORMAL [None]
